FAERS Safety Report 17676522 (Version 8)
Quarter: 2020Q2

REPORT INFORMATION
  Report Type: Report from Study
  Country: CN (occurrence: CN)
  Receive Date: 20200416
  Receipt Date: 20200602
  Transmission Date: 20200714
  Serious: Yes (Hospitalization)
  Sender: FDA-Public Use
  Company Number: CN-EISAI MEDICAL RESEARCH-EC-2020-073341

PATIENT
  Age: 61 Year
  Sex: Male
  Weight: 71 kg

DRUGS (6)
  1. LENVATINIB [Suspect]
     Active Substance: LENVATINIB
     Dosage: 12 MILLIGRAM (8 MG BODY WEIGHT (BW) LESS THAN 60 KG), QD; ORAL
     Route: 048
     Dates: start: 20200201
  2. LENVATINIB [Suspect]
     Active Substance: LENVATINIB
     Indication: HEPATOCELLULAR CARCINOMA
     Dosage: 12 MILLIGRAM, (BODY WEIGHT (BW) LESS THAN 60 KG)
     Route: 048
     Dates: start: 20200110, end: 20200131
  3. PEMBROLIZUMAB. [Suspect]
     Active Substance: PEMBROLIZUMAB
     Indication: HEPATOCELLULAR CARCINOMA
     Route: 041
     Dates: start: 20200110, end: 20200110
  4. PEMBROLIZUMAB. [Suspect]
     Active Substance: PEMBROLIZUMAB
     Route: 041
     Dates: start: 20200201, end: 20200402
  5. IRBESARTAN. [Concomitant]
     Active Substance: IRBESARTAN
     Dates: start: 201701
  6. PEMBROLIZUMAB. [Suspect]
     Active Substance: PEMBROLIZUMAB
     Route: 041
     Dates: start: 20200423

REACTIONS (1)
  - Diarrhoea [Recovered/Resolved]

NARRATIVE: CASE EVENT DATE: 20200113
